FAERS Safety Report 4426401-3 (Version None)
Quarter: 2004Q3

REPORT INFORMATION
  Report Type: 
  Country: None (occurrence: None)
  Receive Date: 20040811
  Receipt Date: 20040729
  Transmission Date: 20050211
  Serious: Yes (Other)
  Sender: FDA-Public Use
  Company Number: 2004040089

PATIENT
  Age: 43 Year
  Sex: Male
  Weight: 58 kg

DRUGS (7)
  1. LIPITOR [Suspect]
     Indication: HYPERCHOLESTEROLAEMIA
     Dosage: 10 MG (1 IN 1 D), ORAL
     Route: 048
     Dates: start: 20030416, end: 20040303
  2. LIPITOR [Suspect]
     Indication: HYPERLIPIDAEMIA
     Dosage: 10 MG (1 IN 1 D), ORAL
     Route: 048
     Dates: start: 20030416, end: 20040303
  3. GLYBURIDE [Concomitant]
  4. FUROSEMIDE [Concomitant]
  5. IMIDAPRIL HYDROCHLORIDE (IMIDAPRIL HYDROCHLORIDE) [Concomitant]
  6. ALLOPURINOL [Concomitant]
  7. METFORMIN HCL [Concomitant]

REACTIONS (11)
  - BLOOD CREATINE PHOSPHOKINASE INCREASED [None]
  - BLOOD CREATININE INCREASED [None]
  - BLOOD UREA INCREASED [None]
  - BLOOD URINE PRESENT [None]
  - INFECTION [None]
  - MALAISE [None]
  - MYOGLOBIN URINE PRESENT [None]
  - OEDEMA PERIPHERAL [None]
  - PYREXIA [None]
  - RENAL DISORDER [None]
  - RHABDOMYOLYSIS [None]
